FAERS Safety Report 9536179 (Version 1)
Quarter: 2013Q2

REPORT INFORMATION
  Report Type: Spontaneous
  Country: US (occurrence: None)
  Receive Date: 20130507
  Receipt Date: 20130507
  Transmission Date: 20140414
  Serious: No
  Sender: FDA-Public Use
  Company Number: PHEH2013US003038

PATIENT
  Age: 62 Year
  Sex: Female

DRUGS (4)
  1. AFINITOR (RAD) [Suspect]
     Indication: RENAL CELL CARCINOMA
     Route: 048
  2. LEVOTHYROXIN (LEVOTHYROXINE SODIUM) [Concomitant]
  3. OXYCODONE (OXYCODONE) [Concomitant]
  4. XGEVA (DENOSUMAB) [Concomitant]

REACTIONS (1)
  - Sinusitis [None]
